FAERS Safety Report 5043889-8 (Version None)
Quarter: 2006Q3

REPORT INFORMATION
  Report Type: 
  Country: None (occurrence: None)
  Receive Date: 20060706
  Receipt Date: 20060502
  Transmission Date: 20061208
  Serious: Yes (Other)
  Sender: FDA-Public Use
  Company Number: US-BRISTOL-MYERS SQUIBB COMPANY-13363684

PATIENT
  Age: 75 Year
  Sex: Male
  Weight: 152 kg

DRUGS (20)
  1. CARBOPLATIN [Suspect]
     Indication: SMALL CELL LUNG CANCER STAGE UNSPECIFIED
     Route: 042
     Dates: start: 20060306, end: 20060306
  2. ZOFRAN [Concomitant]
     Indication: PREMEDICATION
  3. DECADRON [Concomitant]
     Indication: PREMEDICATION
  4. LISINOPRIL [Concomitant]
  5. ALLOPURINOL [Concomitant]
  6. QUININE SULFATE [Concomitant]
  7. SYNTHROID [Concomitant]
  8. ACTOS [Concomitant]
  9. METFORMIN HYDROCHLORIDE [Concomitant]
  10. DUONEB [Concomitant]
  11. BUDESONIDE [Concomitant]
     Route: 055
  12. ACIPHEX [Concomitant]
  13. TYLENOL [Concomitant]
  14. BENEFIBER [Concomitant]
  15. MAGNESIUM OXIDE [Concomitant]
  16. ASPIRIN [Concomitant]
  17. NOVOLOG [Concomitant]
  18. COMPAZINE [Concomitant]
  19. LUNESTA [Concomitant]
  20. VALTREX [Concomitant]

REACTIONS (3)
  - CHEST DISCOMFORT [None]
  - CHEST PAIN [None]
  - DYSPNOEA [None]
